FAERS Safety Report 9057633 (Version 2)
Quarter: 2013Q3

REPORT INFORMATION
  Report Type: Spontaneous
  Country: US (occurrence: US)
  Receive Date: 20130204
  Receipt Date: 20130812
  Transmission Date: 20140515
  Serious: Yes (Death, Hospitalization, Other)
  Sender: FDA-Public Use
  Company Number: US-PFIZER INC-2013039035

PATIENT
  Age: 68 Year
  Sex: Female

DRUGS (14)
  1. REVATIO [Suspect]
     Dosage: UNK
  2. FLOLAN [Suspect]
     Indication: COR PULMONALE CHRONIC
     Dosage: 39 NG/KG/MIN CONTINUOUSLY
     Route: 042
     Dates: start: 20120301
  3. FLOLAN [Suspect]
     Dosage: 39 NG/KG/MIN
     Route: 042
     Dates: start: 20120302
  4. FLOLAN [Suspect]
     Dosage: 39.4 NG/KG/MIN CONTINUOUSLY
     Route: 042
     Dates: start: 20130301
  5. FLOLAN [Suspect]
     Dosage: 39.04 NG/KG/MIN, UNK
     Route: 042
     Dates: start: 20130301
  6. FLOLAN [Suspect]
     Dosage: 35.49 NG/KG/MIN
     Route: 042
  7. FLOLAN [Suspect]
     Dosage: 39 NG/KG/MIN
     Route: 042
  8. FLOLAN [Suspect]
     Dosage: 39 NG/KG/MIN
     Route: 042
  9. FLOLAN [Suspect]
     Dosage: 39 NG/KG/MIN
     Route: 042
  10. FLOLAN [Suspect]
     Dosage: 39 NG/KG/MIN CONTINUOUSLY
     Route: 042
  11. FLOLAN [Suspect]
     Dosage: 39 NG/KG/MIN CONTINUOUSLY
     Route: 042
  12. FLOLAN [Suspect]
     Dosage: 39 NG/KG/MIN CONTINUOUSLY
     Route: 042
  13. LETAIRIS [Suspect]
     Indication: COR PULMONALE CHRONIC
     Dosage: 10 MG, 1X/DAY
     Dates: start: 20080616
  14. LETAIRIS [Suspect]
     Indication: COR PULMONALE CHRONIC

REACTIONS (23)
  - Death [Fatal]
  - Anaemia [Not Recovered/Not Resolved]
  - Red blood cell count decreased [Not Recovered/Not Resolved]
  - White blood cell count decreased [Not Recovered/Not Resolved]
  - Catheter site related reaction [Not Recovered/Not Resolved]
  - General physical health deterioration [Unknown]
  - Systemic lupus erythematosus [Unknown]
  - Dyspnoea [Unknown]
  - Abdominal distension [Unknown]
  - Palpitations [Unknown]
  - Walking distance test abnormal [Unknown]
  - Fluid retention [Unknown]
  - Mobility decreased [Unknown]
  - Renal failure acute [Recovered/Resolved]
  - Dehydration [Unknown]
  - Diabetes mellitus [Recovered/Resolved]
  - Blood glucose increased [Unknown]
  - Fatigue [Unknown]
  - Oedema [Unknown]
  - Epistaxis [Not Recovered/Not Resolved]
  - Abdominal pain [Unknown]
  - Pain in jaw [Unknown]
  - Diarrhoea [Unknown]
